FAERS Safety Report 4307612-4 (Version None)
Quarter: 2004Q1

REPORT INFORMATION
  Report Type: 
  Country: None (occurrence: None)
  Receive Date: 20040225
  Receipt Date: 20030606
  Transmission Date: 20041129
  Serious: Yes (Hospitalization)
  Sender: FDA-Public Use
  Company Number: WAES 0306USA01124

PATIENT
  Age: 74 Year
  Sex: Female

DRUGS (6)
  1. ZOCOR [Suspect]
     Dosage: 10/MG/DAILY/PO; 20 MG
     Route: 048
     Dates: end: 20021001
  2. ZOCOR [Suspect]
     Dosage: 10/MG/DAILY/PO; 20 MG
     Route: 048
     Dates: start: 20010101
  3. COUMADIN [Concomitant]
  4. DIGITEK [Concomitant]
  5. NEURONTIN [Concomitant]
  6. QUINAGLUTE [Concomitant]

REACTIONS (1)
  - MUSCULAR WEAKNESS [None]
